FAERS Safety Report 12315951 (Version 2)
Quarter: 2016Q2

REPORT INFORMATION
  Report Type: Report from Study
  Country: CA (occurrence: CA)
  Receive Date: 20160428
  Receipt Date: 20160504
  Transmission Date: 20160815
  Serious: Yes (Other)
  Sender: FDA-Public Use
  Company Number: PHHY2016CA056412

PATIENT
  Sex: Male

DRUGS (1)
  1. CICLOSPORIN [Suspect]
     Active Substance: CYCLOSPORINE
     Indication: PSORIASIS
     Dosage: UNK
     Route: 048
     Dates: end: 2014

REACTIONS (6)
  - Skin haemorrhage [Unknown]
  - Skin exfoliation [Unknown]
  - Pruritus [Unknown]
  - Psoriasis [Unknown]
  - Erythema [Unknown]
  - Skin fissures [Unknown]
